FAERS Safety Report 19512213 (Version 1)
Quarter: 2021Q3

REPORT INFORMATION
  Report Type: Spontaneous
  Country: NL (occurrence: FR)
  Receive Date: 20210709
  Receipt Date: 20210709
  Transmission Date: 20211014
  Serious: Yes (Hospitalization, Other)
  Sender: FDA-Public Use
  Company Number: FR-FRESENIUS KABI-FK202106867

PATIENT
  Age: 55 Year
  Sex: Female

DRUGS (1)
  1. SODIUM CHLORIDE (MANUFACTURER UNKNOWN) [Suspect]
     Active Substance: SODIUM CHLORIDE
     Indication: FLUID OVERLOAD
     Dosage: 1.3 L IN TOTAL
     Route: 041
     Dates: start: 20210617, end: 20210617

REACTIONS (3)
  - Incorrect dose administered [Recovered/Resolved]
  - Product administration error [Recovered/Resolved]
  - Acute pulmonary oedema [Recovered/Resolved]

NARRATIVE: CASE EVENT DATE: 20210617
